FAERS Safety Report 8291813-7 (Version None)
Quarter: 2012Q2

REPORT INFORMATION
  Report Type: 
  Country: None (occurrence: None)
  Receive Date: 20120417
  Receipt Date: 20120407
  Transmission Date: 20120825
  Serious: Yes (Life-Threatening, Hospitalization, Other)
  Sender: FDA-Public Use
  Company Number: DE-JNJFOC-20120405100

PATIENT
  Sex: Female
  Weight: 73 kg

DRUGS (8)
  1. PANTOPRAZOLE [Concomitant]
     Indication: ULCER
     Dates: start: 20120313
  2. XARELTO [Suspect]
     Route: 048
     Dates: start: 20120222, end: 20120224
  3. MARCUMAR [Concomitant]
  4. SPIRONOLACTONE [Concomitant]
     Indication: PRODUCT USED FOR UNKNOWN INDICATION
     Dosage: 1 DF QOD
  5. XIPAMID [Concomitant]
     Indication: CARDIAC FAILURE
     Dosage: 1 DF QOD
  6. ALLOPURINOL [Concomitant]
     Indication: BLOOD URIC ACID ABNORMAL
  7. LEVOTHYROXINE SODIUM [Concomitant]
     Indication: THYROID GLAND SCAN ABNORMAL
  8. XARELTO [Suspect]
     Indication: ATRIAL FIBRILLATION
     Route: 048
     Dates: start: 20120225

REACTIONS (5)
  - UPPER GASTROINTESTINAL HAEMORRHAGE [None]
  - MELAENA [None]
  - ERUCTATION [None]
  - HAEMOGLOBIN DECREASED [None]
  - TOOTH DISCOLOURATION [None]
